FAERS Safety Report 18050881 (Version 8)
Quarter: 2023Q4

REPORT INFORMATION
  Report Type: Spontaneous
  Country: US (occurrence: US)
  Receive Date: 20200721
  Receipt Date: 20231128
  Transmission Date: 20240109
  Serious: Yes (Other)
  Sender: FDA-Public Use
  Company Number: US-PFIZER INC-2020277467

PATIENT
  Age: 85 Year
  Sex: Female
  Weight: 81.6 kg

DRUGS (6)
  1. IBRANCE [Suspect]
     Active Substance: PALBOCICLIB
     Indication: Breast cancer female
     Dosage: 125 MG
  2. IBRANCE [Suspect]
     Active Substance: PALBOCICLIB
     Indication: Hormone receptor positive breast cancer
     Dosage: 75 MG, CYCLIC, DAILY (28 DAYS SUPPLY)
     Route: 048
  3. IBRANCE [Suspect]
     Active Substance: PALBOCICLIB
     Dosage: 75 MG, CYCLIC, TAKE 1 CAPSULE (75 MG) BY MOUTH X21 DAYS THEN 7 DAYS OFF
     Route: 048
  4. ARIMIDEX [Suspect]
     Active Substance: ANASTROZOLE
     Dosage: UNK
  5. XGEVA [Suspect]
     Active Substance: DENOSUMAB
     Dosage: UNK, MONTHLY
  6. CEFEPIME [Concomitant]
     Active Substance: CEFEPIME HYDROCHLORIDE
     Dosage: UNK

REACTIONS (5)
  - Interstitial lung disease [Unknown]
  - Neoplasm progression [Unknown]
  - Tumour marker increased [Recovering/Resolving]
  - Dyspnoea [Recovered/Resolved]
  - Off label use [Unknown]
